FAERS Safety Report 4690710-3 (Version None)
Quarter: 2005Q2

REPORT INFORMATION
  Report Type: 
  Country: None (occurrence: None)
  Receive Date: 20050613
  Receipt Date: 20050531
  Transmission Date: 20051028
  Serious: Yes (Other)
  Sender: FDA-Public Use
  Company Number: 2005066021

PATIENT
  Age: 40 Year
  Sex: Female
  Weight: 97.5234 kg

DRUGS (5)
  1. BEXTRA [Suspect]
     Indication: BACK PAIN
     Dosage: 20 MG, ORAL
     Route: 048
     Dates: start: 20030109
  2. BEXTRA [Suspect]
     Indication: FIBROMYALGIA
     Dosage: 20 MG, ORAL
     Route: 048
     Dates: start: 20030109
  3. ZOLPIDEM TARTRATE [Concomitant]
  4. VENLAFAXINE HCL [Concomitant]
  5. VALSARTAN [Concomitant]

REACTIONS (2)
  - RASH PUSTULAR [None]
  - SCAR [None]
